FAERS Safety Report 9147446 (Version 2)
Quarter: 2013Q1

REPORT INFORMATION
  Report Type: Report from Study
  Country: US (occurrence: US)
  Receive Date: 20130307
  Receipt Date: 20130318
  Transmission Date: 20140127
  Serious: Yes (Other)
  Sender: FDA-Public Use
  Company Number: US-ABBOTT-13P-163-1056049-00

PATIENT
  Sex: Female
  Weight: 63.56 kg

DRUGS (5)
  1. HUMIRA PEN [Suspect]
     Indication: ANKYLOSING SPONDYLITIS
     Route: 058
     Dates: start: 2011, end: 2011
  2. HUMIRA PEN [Suspect]
     Route: 058
     Dates: start: 2012, end: 2012
  3. PREDNISONE [Concomitant]
     Indication: ANKYLOSING SPONDYLITIS
  4. CARDIZEM [Concomitant]
     Indication: ARRHYTHMIA
  5. INDAPAMIDE [Concomitant]
     Indication: HYPERTENSION

REACTIONS (5)
  - Musculoskeletal pain [Recovered/Resolved]
  - Arthritis [Recovered/Resolved]
  - Exostosis [Recovered/Resolved]
  - Calcinosis [Recovered/Resolved]
  - Appendicitis [Recovered/Resolved]
